FAERS Safety Report 4397021-4 (Version None)
Quarter: 2004Q3

REPORT INFORMATION
  Report Type: 
  Country: None (occurrence: None)
  Receive Date: 20040708
  Receipt Date: 20040623
  Transmission Date: 20050211
  Serious: Yes (Hospitalization)
  Sender: FDA-Public Use
  Company Number: RENA-10959

PATIENT
  Age: 57 Year
  Sex: Male

DRUGS (8)
  1. RENAGEL [Suspect]
     Indication: HYPERPHOSPHATAEMIA
     Dosage: 0.8 G TID PO
     Route: 048
     Dates: start: 20030401
  2. METOPROLOL TARTRATE [Suspect]
  3. PHOS-EX [Concomitant]
  4. EINSALPHA [Concomitant]
  5. VIGANTOLETTEN [Concomitant]
  6. RESTEX [Concomitant]
  7. ROHYPNOL [Concomitant]
  8. MARCUMAR [Concomitant]

REACTIONS (3)
  - HYPERKERATOSIS [None]
  - MOBILITY DECREASED [None]
  - SCLERODERMA [None]
